FAERS Safety Report 9954996 (Version 1)
Quarter: 2014Q1

REPORT INFORMATION
  Report Type: Spontaneous
  Country: PL (occurrence: PL)
  Receive Date: 20140304
  Receipt Date: 20140304
  Transmission Date: 20141002
  Serious: Yes (Hospitalization)
  Sender: FDA-Public Use
  Company Number: PL-CELGENEUS-129-21660-14022594

PATIENT
  Age: 43 Year
  Sex: Male
  Weight: 62 kg

DRUGS (1)
  1. ABRAXANE [Suspect]
     Indication: NEOPLASM MALIGNANT
     Route: 041
     Dates: start: 20140131, end: 20140131

REACTIONS (2)
  - Dyspnoea [Recovered/Resolved]
  - Flushing [Recovered/Resolved]
